FAERS Safety Report 16824488 (Version 2)
Quarter: 2019Q4

REPORT INFORMATION
  Report Type: Report from Study
  Country: IT (occurrence: IT)
  Receive Date: 20190918
  Receipt Date: 20191220
  Transmission Date: 20200122
  Serious: Yes (Hospitalization)
  Sender: FDA-Public Use
  Company Number: PHHY2019IT169050

PATIENT
  Age: 64 Year
  Sex: Female

DRUGS (4)
  1. ESCITALOPRAM [Concomitant]
     Active Substance: ESCITALOPRAM OXALATE
     Indication: PRODUCT USED FOR UNKNOWN INDICATION
     Dosage: 5 OT, UNK
     Route: 048
  2. OLMESAN [Concomitant]
     Indication: HYPERTENSION
     Dosage: 20 OT, UNK
     Route: 048
  3. TRAMETINIB [Suspect]
     Active Substance: TRAMETINIB
     Indication: METASTATIC MALIGNANT MELANOMA
     Dosage: 2 MG, UNK
     Route: 048
     Dates: start: 20190221, end: 20190712
  4. TAFINLAR [Suspect]
     Active Substance: DABRAFENIB MESYLATE
     Indication: METASTATIC MALIGNANT MELANOMA
     Dosage: 300 MG, UNK
     Route: 048
     Dates: start: 20190221, end: 20190712

REACTIONS (12)
  - Arthralgia [Recovered/Resolved]
  - Pancreatic cyst [Recovering/Resolving]
  - Cerebral infarction [Recovering/Resolving]
  - Infection [Recovered/Resolved]
  - Confusional state [Recovered/Resolved]
  - Streptococcal sepsis [Recovered/Resolved]
  - Pyrexia [Recovered/Resolved]
  - Pleural effusion [Recovering/Resolving]
  - Renal ischaemia [Recovering/Resolving]
  - Renal infarct [Recovering/Resolving]
  - Splenic infarction [Recovering/Resolving]
  - Ascites [Recovering/Resolving]

NARRATIVE: CASE EVENT DATE: 20190704
